FAERS Safety Report 8199671-6 (Version None)
Quarter: 2012Q1

REPORT INFORMATION
  Report Type: 
  Country: None (occurrence: None)
  Receive Date: 20120311
  Receipt Date: 20120301
  Transmission Date: 20120608
  Serious: Yes (Hospitalization)
  Sender: FDA-Public Use
  Company Number: US-ASTRAZENECA-2012SE14592

PATIENT
  Age: 22177 Day
  Sex: Female
  Weight: 58.5 kg

DRUGS (11)
  1. SPIRIVA [Concomitant]
     Indication: CHRONIC OBSTRUCTIVE PULMONARY DISEASE
     Route: 055
     Dates: start: 20110815
  2. CYMBALTA [Concomitant]
     Indication: DEPRESSION
     Route: 048
     Dates: start: 20100401
  3. CLONAZEPAM [Concomitant]
     Indication: RESTLESS LEGS SYNDROME
     Route: 048
     Dates: start: 20100401
  4. VITAMIN B-12 [Concomitant]
     Indication: ANAEMIA
     Route: 030
     Dates: start: 20090101
  5. SYMBICORT [Suspect]
     Indication: CHRONIC OBSTRUCTIVE PULMONARY DISEASE
     Dosage: 160/4.5 MCG, 2 PUFFS BID
     Route: 055
     Dates: start: 20110815
  6. LORATADINE [Concomitant]
     Indication: MULTIPLE ALLERGIES
     Route: 048
     Dates: start: 20110815
  7. ALPRAZOLAM [Concomitant]
     Indication: ANXIETY
     Route: 048
  8. CARISOPRODOL [Concomitant]
     Indication: INSOMNIA
     Route: 048
     Dates: start: 20091201
  9. MYCELEX [Concomitant]
     Indication: CANDIDIASIS
     Route: 060
     Dates: start: 20120125, end: 20120126
  10. STUDY MEDICATION [Suspect]
     Indication: CHRONIC OBSTRUCTIVE PULMONARY DISEASE
     Route: 048
     Dates: start: 20111231
  11. HYDROCODONE BITARTRATE [Concomitant]
     Indication: PAIN
     Dosage: 30/1500 MG THREE TIMES A DAY
     Route: 048

REACTIONS (3)
  - INSOMNIA [None]
  - ASTHENIA [None]
  - PLEURISY [None]
